FAERS Safety Report 6627009-1 (Version None)
Quarter: 2010Q1

REPORT INFORMATION
  Report Type: 
  Country: None (occurrence: None)
  Receive Date: 20100311
  Receipt Date: 20100226
  Transmission Date: 20100710
  Serious: Yes (Other)
  Sender: FDA-Public Use
  Company Number: GB-ALEXION-A201000237

PATIENT

DRUGS (3)
  1. SOLIRIS [Suspect]
     Indication: PAROXYSMAL NOCTURNAL HAEMOGLOBINURIA
     Dosage: UNK
     Route: 042
     Dates: start: 20071101
  2. SOLIRIS [Suspect]
     Dosage: 900 MG, Q2W
     Route: 042
  3. BUSCOPAN                           /00008702/ [Concomitant]
     Indication: GASTRIC DISORDER
     Dosage: 1-2 TABS, QD
     Route: 048

REACTIONS (4)
  - DEAFNESS TRANSITORY [None]
  - FEELING COLD [None]
  - SINUS DISORDER [None]
  - TINNITUS [None]
